FAERS Safety Report 9566957 (Version 1)
Quarter: 2013Q3

REPORT INFORMATION
  Report Type: Spontaneous
  Country: US (occurrence: US)
  Receive Date: 20130930
  Receipt Date: 20130930
  Transmission Date: 20140515
  Serious: No
  Sender: FDA-Public Use
  Company Number: US-AMGEN-USASP2012061473

PATIENT
  Sex: Female

DRUGS (18)
  1. ENBREL [Suspect]
     Indication: PRODUCT USED FOR UNKNOWN INDICATION
     Dosage: 50 MG, QWK
  2. BUDEPRION [Concomitant]
     Dosage: 100 MG, UNK SR
  3. OMEPRAZOLE [Concomitant]
     Dosage: 20 MG, UNK
  4. TYLENOL WITH CODEIN #3 [Concomitant]
     Dosage: UNK
  5. NIACIN [Concomitant]
     Dosage: 400 MG, UNK
  6. FISH OIL [Concomitant]
     Dosage: UNK
  7. LIPITOR [Concomitant]
     Dosage: 10 MG, UNK
  8. HYDROXYCHLOROQUINE [Concomitant]
     Dosage: 200 MG, UNK
  9. ISOSORB MONO [Concomitant]
     Dosage: 30 MG, UNK, ER
  10. METOPROLOL [Concomitant]
     Dosage: 25 MG, UNK, ER
  11. ASPIRIN [Concomitant]
     Dosage: 81 MG, UNK
  12. CYMBALTA [Concomitant]
     Dosage: 20 MG, UNK
  13. VITAMIN D                          /00318501/ [Concomitant]
     Dosage: 1000 UNIT, UNK
  14. NORTRIPTYLIN [Concomitant]
     Dosage: 10 MG, UNK
  15. FOLIC ACID [Concomitant]
     Dosage: 200 MUG, UNK
  16. PREDNISONE [Concomitant]
     Dosage: 01 MG, UNK
  17. SULFASALAZIN [Concomitant]
     Dosage: 500 MG, UNK
  18. CO Q-10 [Concomitant]
     Dosage: 100 MG, UNK

REACTIONS (2)
  - Pain [Unknown]
  - Musculoskeletal stiffness [Unknown]
